FAERS Safety Report 13721465 (Version 1)
Quarter: 2017Q3

REPORT INFORMATION
  Report Type: Spontaneous
  Country: US (occurrence: US)
  Receive Date: 20170706
  Receipt Date: 20170706
  Transmission Date: 20171127
  Serious: Yes (Other)
  Sender: FDA-Public Use
  Company Number: US-STRIDES ARCOLAB LIMITED-2017SP010370

PATIENT

DRUGS (3)
  1. SODIUM HYALURONATE [Interacting]
     Active Substance: HYALURONATE SODIUM
     Indication: CATARACT OPERATION
     Dosage: UNKNOWN
     Route: 065
  2. VANCOMYCIN [Suspect]
     Active Substance: VANCOMYCIN
     Indication: PROPHYLAXIS
     Dosage: 1 MG/0.1 ML INTRACAMERAL
     Route: 031
  3. VANCOMYCIN [Interacting]
     Active Substance: VANCOMYCIN
     Dosage: 1 MG/0.1 ML
     Route: 031

REACTIONS (12)
  - Retinal vasculitis [Unknown]
  - Retinal vascular occlusion [Unknown]
  - Type III immune complex mediated reaction [Unknown]
  - Vitreous floaters [Unknown]
  - Blindness [Unknown]
  - Retinal ischaemia [Unknown]
  - Retinal perivascular sheathing [Unknown]
  - Corneal oedema [Unknown]
  - Visual acuity reduced [Unknown]
  - Retinal haemorrhage [Unknown]
  - Drug interaction [Unknown]
  - Glaucoma [Unknown]
